FAERS Safety Report 11277797 (Version 2)
Quarter: 2015Q3

REPORT INFORMATION
  Report Type: Spontaneous
  Country: US (occurrence: US)
  Receive Date: 20150716
  Receipt Date: 20150720
  Transmission Date: 20151125
  Serious: Yes (Death)
  Sender: FDA-Public Use
  Company Number: US-JNJFOC-20150711291

PATIENT
  Age: 37 Year
  Sex: Male

DRUGS (2)
  1. LOCAL HAEMOSTATICS [Concomitant]
     Active Substance: UNSPECIFIED INGREDIENT
     Indication: HAEMOSTASIS
     Route: 065
  2. EVICEL [Suspect]
     Active Substance: FIBRINOGEN HUMAN\THROMBIN HUMAN
     Indication: HAEMOSTASIS
     Route: 061

REACTIONS (1)
  - Acute myocardial infarction [Fatal]
